FAERS Safety Report 6405883-1 (Version None)
Quarter: 2009Q4

REPORT INFORMATION
  Report Type: 
  Country: None (occurrence: None)
  Receive Date: 20091016
  Receipt Date: 20091016
  Transmission Date: 20100525
  Serious: Yes (Other)
  Sender: FDA-Public Use
  Company Number: None

PATIENT
  Age: 46 Year
  Sex: Male
  Weight: 115.6672 kg

DRUGS (1)
  1. LISINOPRIL [Suspect]
     Indication: HYPERTENSION
     Dosage: 30MG PER DAY PO
     Route: 048
     Dates: start: 20090907, end: 20091011

REACTIONS (21)
  - BACK PAIN [None]
  - CHEST PAIN [None]
  - CHILLS [None]
  - CONFUSIONAL STATE [None]
  - COUGH [None]
  - DEHYDRATION [None]
  - DIARRHOEA [None]
  - DYSSTASIA [None]
  - FATIGUE [None]
  - HYPERHIDROSIS [None]
  - HYPOTENSION [None]
  - IMPAIRED DRIVING ABILITY [None]
  - IMPAIRED WORK ABILITY [None]
  - INFLUENZA LIKE ILLNESS [None]
  - LIP DRY [None]
  - PAIN [None]
  - PARAESTHESIA [None]
  - PERIPHERAL COLDNESS [None]
  - PRESYNCOPE [None]
  - TREMOR [None]
  - UNEVALUABLE EVENT [None]
